FAERS Safety Report 6693889-7 (Version None)
Quarter: 2010Q2

REPORT INFORMATION
  Report Type: 
  Country: None (occurrence: None)
  Receive Date: 20100423
  Receipt Date: 20100414
  Transmission Date: 20101027
  Serious: Yes (Other)
  Sender: FDA-Public Use
  Company Number: PHHY2010IT23063

PATIENT
  Sex: Male

DRUGS (5)
  1. ZOMETA [Suspect]
     Indication: METASTASES TO BONE
     Dosage: 4 MG  MONTHLY
     Route: 042
     Dates: start: 20080818, end: 20100301
  2. CARBOPLATIN [Concomitant]
     Route: 042
  3. GEMCITABINE HCL [Concomitant]
     Route: 042
  4. VINORELBINE [Concomitant]
  5. TAXOTERE [Concomitant]

REACTIONS (1)
  - OSTEONECROSIS [None]
